FAERS Safety Report 23436442 (Version 1)
Quarter: 2024Q1

REPORT INFORMATION
  Report Type: Spontaneous
  Country: GB (occurrence: GB)
  Receive Date: 20240124
  Receipt Date: 20240124
  Transmission Date: 20240409
  Serious: Yes (Life-Threatening, Hospitalization, Disabling, Other)
  Sender: FDA-Public Use
  Company Number: None

PATIENT
  Age: 66 Year
  Sex: Male
  Weight: 76 kg

DRUGS (18)
  1. EMPAGLIFLOZIN [Suspect]
     Active Substance: EMPAGLIFLOZIN
     Indication: Product used for unknown indication
     Route: 048
     Dates: start: 20190101, end: 20240102
  2. HYDROMOL EMOLLIENT [Concomitant]
     Indication: Product used for unknown indication
     Dosage: USE AS DIRECTED TWICE DAILY TO DRY SKIN
     Dates: start: 20240115
  3. INSULIN ASPART [Concomitant]
     Active Substance: INSULIN ASPART
     Indication: Product used for unknown indication
     Dosage: USE AS DIRECTED TWICE DAILY
     Dates: start: 20240102
  4. TRULICITY [Concomitant]
     Active Substance: DULAGLUTIDE
     Indication: Product used for unknown indication
     Dosage: USE AS DIRECTED BY [REDACTED], DIABETIC NURSE
     Dates: start: 20230213, end: 20240112
  5. AMLODIPINE [Concomitant]
     Active Substance: AMLODIPINE BESYLATE
     Indication: Product used for unknown indication
     Dosage: ^^^^^^^SUSPENDED AS PER DS 29/12/23^^^^^^
     Dates: start: 20230213, end: 20240112
  6. ASPIRIN [Concomitant]
     Active Substance: ASPIRIN
     Indication: Product used for unknown indication
     Dates: start: 20230213
  7. ATORVASTATIN [Concomitant]
     Active Substance: ATORVASTATIN
     Indication: Product used for unknown indication
     Dosage: AT NIGHT
     Dates: start: 20230213
  8. BISOPROLOL [Concomitant]
     Active Substance: BISOPROLOL\BISOPROLOL FUMARATE
     Indication: Product used for unknown indication
     Dates: start: 20240102
  9. BUMETANIDE [Concomitant]
     Active Substance: BUMETANIDE
     Indication: Product used for unknown indication
     Dosage: MORNING
     Dates: start: 20231204, end: 20240112
  10. DULOXETINE [Concomitant]
     Active Substance: DULOXETINE
     Indication: Product used for unknown indication
     Dosage: ^^^^^^^SUSPENDED AS PER DS 29/12/23^^^^^^
     Dates: start: 20230630, end: 20240112
  11. FERROUS FUMARATE [Concomitant]
     Active Substance: FERROUS FUMARATE
     Indication: Product used for unknown indication
     Dosage: OCTOBER, NOVEMBER, DEC ...
     Dates: start: 20230213, end: 20240102
  12. GLICLAZIDE [Concomitant]
     Active Substance: GLICLAZIDE
     Indication: Product used for unknown indication
     Dosage: TAKE ONE WITH BREAKFAST AND ONE WITH AN EVENING...
     Dates: start: 20230213, end: 20240102
  13. ISOSORBIDE MONONITRATE [Concomitant]
     Active Substance: ISOSORBIDE MONONITRATE
     Indication: Product used for unknown indication
     Dosage: MORNING
     Dates: start: 20231204, end: 20240102
  14. LANSOPRAZOLE [Concomitant]
     Active Substance: LANSOPRAZOLE
     Indication: Product used for unknown indication
     Dates: start: 20230213
  15. METFORMIN [Concomitant]
     Active Substance: METFORMIN HYDROCHLORIDE
     Indication: Product used for unknown indication
     Dosage: = TOTAL DOSE 2 GRAMS
     Dates: start: 20230213
  16. NAPROXEN [Concomitant]
     Active Substance: NAPROXEN
     Indication: Product used for unknown indication
     Dosage: WITH FOOD
     Dates: start: 20231110, end: 20231208
  17. RAMIPRIL [Concomitant]
     Active Substance: RAMIPRIL
     Indication: Product used for unknown indication
     Dosage: ^^^^^^^SUSPENDED AS PER DS 29/12/23^^^^^^
     Dates: start: 20230213
  18. SENNA LEAF [Concomitant]
     Active Substance: SENNA LEAF
     Indication: Constipation
     Dosage: TAKE 1 OR 2 AT NIGHT WHEN REQUIRED
     Dates: start: 20231113, end: 20231211

REACTIONS (1)
  - Fournier^s gangrene [Not Recovered/Not Resolved]

NARRATIVE: CASE EVENT DATE: 20231227
